FAERS Safety Report 5651900-6 (Version None)
Quarter: 2008Q1

REPORT INFORMATION
  Report Type: 
  Country: None (occurrence: None)
  Receive Date: 20080305
  Receipt Date: 20080304
  Transmission Date: 20080703
  Serious: Yes (Hospitalization)
  Sender: FDA-Public Use
  Company Number: AU-MERCK-0802AUS00165

PATIENT
  Age: 59 Year
  Sex: Female

DRUGS (9)
  1. FOSAMAX [Suspect]
     Indication: OSTEOPOROSIS
     Route: 048
     Dates: start: 20070101, end: 20071001
  2. CELECOXIB [Concomitant]
     Indication: OSTEOPOROSIS
     Route: 065
     Dates: end: 20071001
  3. METHOTREXATE [Concomitant]
     Indication: RHEUMATOID ARTHRITIS
     Route: 048
  4. PREDNISONE [Concomitant]
     Indication: RHEUMATOID ARTHRITIS
     Route: 048
  5. AMLODIPINE BESYLATE [Concomitant]
     Indication: HYPERTENSION
     Route: 065
  6. FOLIC ACID [Concomitant]
     Route: 065
  7. HYDROXYCHLOROQUINE SULFATE [Concomitant]
     Indication: RHEUMATOID ARTHRITIS
     Route: 048
  8. PHENYTOIN [Concomitant]
     Indication: EPILEPSY
     Route: 065
  9. ALBUTEROL SULFATE [Concomitant]
     Indication: ASTHMA
     Route: 065

REACTIONS (5)
  - ABDOMINAL DISTENSION [None]
  - ABDOMINAL PAIN UPPER [None]
  - CHEST PAIN [None]
  - DRUG ADMINISTRATION ERROR [None]
  - GASTROOESOPHAGEAL REFLUX DISEASE [None]
